FAERS Safety Report 9828457 (Version 3)
Quarter: 2014Q1

REPORT INFORMATION
  Report Type: Spontaneous
  Country: TW (occurrence: TW)
  Receive Date: 20140117
  Receipt Date: 20140219
  Transmission Date: 20141002
  Serious: Yes (Hospitalization)
  Sender: FDA-Public Use
  Company Number: TW-ABBVIE-13P-153-1116449-00

PATIENT
  Age: 70 Year
  Sex: Male
  Weight: 50 kg

DRUGS (5)
  1. HUMIRA [Suspect]
     Indication: RHEUMATOID ARTHRITIS
     Route: 058
     Dates: start: 20121017
  2. HUMIRA [Suspect]
     Dates: start: 20130711, end: 20131224
  3. PREDNISOLONE [Concomitant]
     Indication: RHEUMATOID ARTHRITIS
     Route: 048
     Dates: start: 20120802
  4. MTX [Concomitant]
     Indication: RHEUMATOID ARTHRITIS
     Route: 048
     Dates: start: 20120503
  5. APO-TRAMADOL/ACET [Concomitant]
     Indication: RHEUMATOID ARTHRITIS
     Dosage: 1#
     Route: 048
     Dates: start: 20120802

REACTIONS (7)
  - Gastritis erosive [Recovered/Resolved]
  - Upper gastrointestinal haemorrhage [Recovered/Resolved]
  - Inguinal hernia [Recovered/Resolved]
  - Asthenia [Not Recovered/Not Resolved]
  - Upper gastrointestinal haemorrhage [Recovered/Resolved]
  - Pulmonary tuberculosis [Not Recovered/Not Resolved]
  - Pyrexia [Recovered/Resolved]
